FAERS Safety Report 5320409-1 (Version None)
Quarter: 2007Q1

REPORT INFORMATION
  Report Type: 
  Country: None (occurrence: None)
  Receive Date: 20070220
  Receipt Date: 20070216
  Transmission Date: 20070707
  Serious: No
  Sender: FDA-Public Use
  Company Number: WAES 0612USA02927

PATIENT
  Age: 42 Year
  Sex: Female

DRUGS (2)
  1. JANUVIA [Suspect]
     Indication: DIABETES MELLITUS
     Dosage: 100 MG/DAILY/PO
     Route: 048
     Dates: start: 20061215
  2. FORTAMET [Concomitant]

REACTIONS (2)
  - BLOOD GLUCOSE DECREASED [None]
  - DRUG INEFFECTIVE [None]
